FAERS Safety Report 4378655-X (Version None)
Quarter: 2004Q2

REPORT INFORMATION
  Report Type: 
  Country: None (occurrence: None)
  Receive Date: 20040610
  Receipt Date: 20040602
  Transmission Date: 20050107
  Serious: Yes (Hospitalization)
  Sender: FDA-Public Use
  Company Number: 2003-109378-NL

PATIENT
  Age: 59 Year
  Sex: Female

DRUGS (3)
  1. MIRTAZAPINE [Suspect]
     Indication: DEPRESSION
     Dosage: 60 MG
     Route: 048
     Dates: end: 20030918
  2. CLOZAPINE [Suspect]
     Indication: SCHIZOPHRENIA
     Dosage: 150 MG
     Route: 048
     Dates: start: 20030714
  3. LITHIUM CARBONATE [Concomitant]

REACTIONS (9)
  - ATAXIA [None]
  - CIRCULATORY COLLAPSE [None]
  - DISORIENTATION [None]
  - ELECTROCARDIOGRAM T WAVE INVERSION [None]
  - GAIT DISTURBANCE [None]
  - LEUKOCYTOSIS [None]
  - NEUTROPHILIA [None]
  - ORTHOSTATIC HYPOTENSION [None]
  - PYREXIA [None]
